FAERS Safety Report 20804046 (Version 2)
Quarter: 2022Q2

REPORT INFORMATION
  Report Type: Spontaneous
  Country: US (occurrence: US)
  Receive Date: 20220509
  Receipt Date: 20220525
  Transmission Date: 20220720
  Serious: No
  Sender: FDA-Public Use
  Company Number: US-PFIZER INC-202200412385

PATIENT
  Age: 46 Year
  Sex: Female

DRUGS (4)
  1. INLYTA [Suspect]
     Active Substance: AXITINIB
     Dosage: 5 MG, 2X/DAY (5MG TWICE A DAY)
     Dates: end: 2022
  2. INLYTA [Suspect]
     Active Substance: AXITINIB
     Dosage: 3 MG, 2X/DAY (3MG TWICE A DAY)
     Dates: start: 20220228
  3. INLYTA [Suspect]
     Active Substance: AXITINIB
     Dosage: 4 MG, 2X/DAY (2 IN THE MORNING AND 2 IN THE EVENING)
     Dates: start: 20220225, end: 20220415
  4. INLYTA [Suspect]
     Active Substance: AXITINIB
     Dosage: 1 MG

REACTIONS (14)
  - Glossodynia [Unknown]
  - Headache [Unknown]
  - Diarrhoea [Recovered/Resolved]
  - Flatulence [Not Recovered/Not Resolved]
  - Dyspepsia [Unknown]
  - Epigastric discomfort [Unknown]
  - Abdominal pain upper [Unknown]
  - Blister [Recovered/Resolved]
  - Hot flush [Unknown]
  - Constipation [Recovering/Resolving]
  - Insomnia [Recovering/Resolving]
  - Pain in extremity [Unknown]
  - Hyperhidrosis [Unknown]
  - Visual impairment [Unknown]

NARRATIVE: CASE EVENT DATE: 20220101
